FAERS Safety Report 5769632-2 (Version None)
Quarter: 2008Q2

REPORT INFORMATION
  Report Type: 
  Country: None (occurrence: None)
  Receive Date: 20080612
  Receipt Date: 20080402
  Transmission Date: 20081010
  Serious: No
  Sender: FDA-Public Use
  Company Number: US-ABBOTT-08P-163-0445309-00

PATIENT
  Sex: Female
  Weight: 67.192 kg

DRUGS (5)
  1. HUMIRA [Suspect]
     Indication: RHEUMATOID ARTHRITIS
     Route: 058
     Dates: start: 20080131
  2. METHOTREXATE [Concomitant]
     Indication: RHEUMATOID ARTHRITIS
     Route: 048
     Dates: start: 19961201
  3. FOLIC ACID [Concomitant]
     Indication: VITAMIN SUPPLEMENTATION
     Route: 048
     Dates: start: 19961201
  4. PYROXICAM GENERIC [Concomitant]
     Indication: PAIN
     Dosage: TAKE 2 DAYS, SKIP ONE DAY, REPEAT
     Route: 048
  5. ALLERGY SHOTS [Concomitant]
     Indication: MULTIPLE ALLERGIES
     Route: 058
     Dates: start: 20060101

REACTIONS (1)
  - INJECTION SITE ERYTHEMA [None]
